FAERS Safety Report 20795444 (Version 1)
Quarter: 2022Q2

REPORT INFORMATION
  Report Type: Spontaneous
  Country: US (occurrence: None)
  Receive Date: 20220505
  Receipt Date: 20220505
  Transmission Date: 20220721
  Serious: No
  Sender: FDA-Public Use
  Company Number: None

PATIENT
  Age: 40 Year
  Sex: Female
  Weight: 56.25 kg

DRUGS (5)
  1. DYSPORT [Suspect]
     Active Substance: ABOBOTULINUMTOXINA
     Indication: Skin cosmetic procedure
     Dates: start: 20220129
  2. SUBOXONE [Concomitant]
     Active Substance: BUPRENORPHINE HYDROCHLORIDE\NALOXONE HYDROCHLORIDE
  3. ZOLOFT [Concomitant]
     Active Substance: SERTRALINE HYDROCHLORIDE
  4. HYDROXYZINE [Concomitant]
     Active Substance: HYDROXYZINE HYDROCHLORIDE
  5. TRAZODONE [Concomitant]
     Active Substance: TRAZODONE HYDROCHLORIDE

REACTIONS (19)
  - Anxiety [None]
  - Throat tightness [None]
  - Agitation [None]
  - Anger [None]
  - Violence-related symptom [None]
  - Dry eye [None]
  - Vision blurred [None]
  - Nausea [None]
  - Headache [None]
  - Disturbance in attention [None]
  - Insomnia [None]
  - Mood swings [None]
  - Anxiety [None]
  - Diarrhoea [None]
  - Constipation [None]
  - Urinary incontinence [None]
  - Dizziness [None]
  - Injection site pain [None]
  - Muscle twitching [None]

NARRATIVE: CASE EVENT DATE: 20220201
